FAERS Safety Report 20536587 (Version 1)
Quarter: 2022Q1

REPORT INFORMATION
  Report Type: Spontaneous
  Country: US (occurrence: None)
  Receive Date: 20220301
  Receipt Date: 20220301
  Transmission Date: 20220423
  Serious: No
  Sender: FDA-Public Use
  Company Number: None

PATIENT
  Sex: Female

DRUGS (4)
  1. OTEZLA [Suspect]
     Active Substance: APREMILAST
     Indication: Polyarthritis
     Route: 048
     Dates: start: 202110
  2. OTEZLA [Suspect]
     Active Substance: APREMILAST
     Indication: Psoriatic arthropathy
  3. OTEZLA [Suspect]
     Active Substance: APREMILAST
     Indication: Psoriatic arthropathy
  4. OTEZLA [Suspect]
     Active Substance: APREMILAST
     Indication: Asthma

REACTIONS (5)
  - Pruritus [None]
  - Burning sensation [None]
  - Pain [None]
  - Drug hypersensitivity [None]
  - Urticaria [None]
